FAERS Safety Report 9813729 (Version 2)
Quarter: 2014Q1

REPORT INFORMATION
  Report Type: Spontaneous
  Country: DE (occurrence: DE)
  Receive Date: 20140113
  Receipt Date: 20140113
  Transmission Date: 20141002
  Serious: Yes (Hospitalization, Other)
  Sender: FDA-Public Use
  Company Number: DE-BRISTOL-MYERS SQUIBB COMPANY-19622927

PATIENT
  Age: 78 Year
  Sex: Female
  Weight: 75 kg

DRUGS (5)
  1. ELIQUIS [Suspect]
     Indication: CEREBROVASCULAR ACCIDENT
     Dosage: ELIQUIS TABS?SINCE MARCH
     Dates: start: 201303
  2. SIMVASTATIN [Concomitant]
  3. METOPROLOL [Concomitant]
  4. TORASEMIDE [Concomitant]
     Dosage: TWO IN THE MORNING AND ONE AT MIDDAY
  5. GABAPENTIN [Concomitant]

REACTIONS (2)
  - Dyspnoea [Unknown]
  - Swelling face [Recovered/Resolved]
